FAERS Safety Report 6239298-6 (Version None)
Quarter: 2009Q2

REPORT INFORMATION
  Report Type: 
  Country: None (occurrence: None)
  Receive Date: 20090618
  Receipt Date: 20090618
  Transmission Date: 20091009
  Serious: Yes (Other)
  Sender: FDA-Public Use
  Company Number: None

PATIENT
  Age: 44 Year
  Sex: Male
  Weight: 88.4514 kg

DRUGS (7)
  1. ZICAM NASAL SPRAY GEL [Suspect]
     Indication: NASOPHARYNGITIS
     Dosage: AS DIRECTED IN PACKAGAE INSERT
  2. ZICAM NASAL SPRAY GEL [Suspect]
     Indication: SINUS CONGESTION
     Dosage: AS DIRECTED IN PACKAGAE INSERT
  3. CLARITIN [Concomitant]
  4. VIT C [Concomitant]
  5. ONE A DAY MENS MULTIVITAMIN [Concomitant]
  6. FISH OIL [Concomitant]
  7. FLAX SEED OIL [Concomitant]

REACTIONS (3)
  - ANOSMIA [None]
  - PRODUCT QUALITY ISSUE [None]
  - SINUS HEADACHE [None]
